FAERS Safety Report 7574003-2 (Version None)
Quarter: 2011Q2

REPORT INFORMATION
  Report Type: 
  Country: None (occurrence: None)
  Receive Date: 20110627
  Receipt Date: 20110621
  Transmission Date: 20111010
  Serious: Yes (Hospitalization)
  Sender: FDA-Public Use
  Company Number: AU-SHIRE-ALL1-2011-02002

PATIENT
  Age: 88 Year
  Sex: Female

DRUGS (2)
  1. HYDROXYUREA [Concomitant]
     Indication: SKIN ULCER
     Dosage: UNK, UNKNOWN
     Route: 065
  2. AGRYLIN [Suspect]
     Indication: ESSENTIAL THROMBOCYTHAEMIA
     Dosage: 0.5 MG, 2X/DAY:BID
     Route: 048

REACTIONS (2)
  - SUPRAVENTRICULAR TACHYCARDIA [None]
  - SKIN ULCER [None]
